FAERS Safety Report 16482877 (Version 7)
Quarter: 2019Q4

REPORT INFORMATION
  Report Type: Report from Study
  Country: JP (occurrence: JP)
  Receive Date: 20190627
  Receipt Date: 20191108
  Transmission Date: 20200122
  Serious: Yes (Hospitalization)
  Sender: FDA-Public Use
  Company Number: JP-EISAI MEDICAL RESEARCH-EC-2019-058261

PATIENT
  Age: 57 Year
  Sex: Female
  Weight: 66 kg

DRUGS (17)
  1. MAGMITT [Concomitant]
     Active Substance: MAGNESIUM OXIDE
  2. MOHRUS TAPE [Concomitant]
     Active Substance: KETOPROFEN
  3. FYCOMPA [Suspect]
     Active Substance: PERAMPANEL
     Dosage: DOSE AND FREQUENCY UNKNOWN
     Route: 048
     Dates: start: 20190510, end: 20190530
  4. ROSUVASTATIN OD [Concomitant]
  5. FYCOMPA [Suspect]
     Active Substance: PERAMPANEL
     Route: 048
     Dates: start: 20190531, end: 20190613
  6. FYCOMPA [Suspect]
     Active Substance: PERAMPANEL
     Route: 048
     Dates: start: 20190621, end: 20190704
  7. CALONAL [Suspect]
     Active Substance: ACETAMINOPHEN
     Indication: LIGAMENT SPRAIN
     Dosage: UNKNOWN FREQUENCY
     Route: 048
     Dates: start: 20190606, end: 20190701
  8. CALONAL [Suspect]
     Active Substance: ACETAMINOPHEN
     Indication: HEADACHE
     Route: 048
     Dates: start: 2019
  9. MUCODYNE [Concomitant]
     Active Substance: CARBOCYSTEINE
  10. FYCOMPA [Suspect]
     Active Substance: PERAMPANEL
     Indication: AMYOTROPHIC LATERAL SCLEROSIS
     Dosage: DOSE AND FREQUENCY UNKNOWN
     Route: 048
     Dates: start: 20180509, end: 20190409
  11. VEGAMOX [Concomitant]
     Active Substance: MOXIFLOXACIN HYDROCHLORIDE
  12. LIXIANA OD [Concomitant]
     Active Substance: EDOXABAN TOSYLATE
  13. METHYCOBAL [Concomitant]
     Active Substance: METHYLCOBALAMIN
  14. FYCOMPA [Suspect]
     Active Substance: PERAMPANEL
     Route: 048
     Dates: start: 20190614, end: 20190620
  15. RADICUT [Concomitant]
     Active Substance: EDARAVONE
  16. FYCOMPA [Suspect]
     Active Substance: PERAMPANEL
     Route: 048
     Dates: start: 20190717
  17. RILUTEK [Concomitant]
     Active Substance: RILUZOLE

REACTIONS (2)
  - Pneumonia aspiration [Recovered/Resolved]
  - Hepatic function abnormal [Recovered/Resolved]

NARRATIVE: CASE EVENT DATE: 20190621
